FAERS Safety Report 17803338 (Version 1)
Quarter: 2020Q2

REPORT INFORMATION
  Report Type: Spontaneous
  Country: US (occurrence: US)
  Receive Date: 20200519
  Receipt Date: 20200519
  Transmission Date: 20200714
  Serious: No
  Sender: FDA-Public Use
  Company Number: US-PFIZER INC-2020197940

PATIENT
  Age: 57 Year
  Sex: Female
  Weight: 69.84 kg

DRUGS (3)
  1. ZOLADEX [Concomitant]
     Active Substance: GOSERELIN ACETATE
     Indication: OESTROGEN THERAPY
     Dosage: 25 UG ONCE MONTLY
  2. IBRANCE [Suspect]
     Active Substance: PALBOCICLIB
     Indication: BREAST CANCER METASTATIC
     Dosage: 125 MG, DAILY, 21 DAYS ON, 1 WEEK OFF
  3. FASLODEX [Concomitant]
     Active Substance: FULVESTRANT
     Indication: OESTROGEN THERAPY
     Dosage: 500 MG, (2 NEEDLES ADMINISTERED ONCE MONTHLY)

REACTIONS (3)
  - Abdominal discomfort [Not Recovered/Not Resolved]
  - Headache [Not Recovered/Not Resolved]
  - Vomiting [Unknown]

NARRATIVE: CASE EVENT DATE: 202005
